FAERS Safety Report 6231759-9 (Version None)
Quarter: 2009Q2

REPORT INFORMATION
  Report Type: 
  Country: None (occurrence: None)
  Receive Date: 20090616
  Receipt Date: 20090608
  Transmission Date: 20091009
  Serious: Yes (Other)
  Sender: FDA-Public Use
  Company Number: PHHY2009DE23088

PATIENT

DRUGS (1)
  1. TASIGNA [Suspect]
     Dosage: 600 MG DAILY
     Route: 048
     Dates: start: 20071001

REACTIONS (1)
  - BASAL CELL CARCINOMA [None]
